FAERS Safety Report 12954380 (Version 1)
Quarter: 2016Q4

REPORT INFORMATION
  Report Type: Spontaneous
  Country: US (occurrence: US)
  Receive Date: 20161118
  Receipt Date: 20161118
  Transmission Date: 20170207
  Serious: No
  Sender: FDA-Public Use
  Company Number: US-PFIZER INC-2016529084

PATIENT
  Age: 71 Year
  Sex: Female

DRUGS (3)
  1. INLYTA [Suspect]
     Active Substance: AXITINIB
     Dosage: 3 MG, UNK
  2. INLYTA [Suspect]
     Active Substance: AXITINIB
     Dosage: 2 MG, UNK
  3. INLYTA [Suspect]
     Active Substance: AXITINIB
     Dosage: 5 MG, UNK

REACTIONS (3)
  - Nausea [Recovering/Resolving]
  - Gastrointestinal disorder [Recovering/Resolving]
  - Condition aggravated [Recovering/Resolving]
